FAERS Safety Report 4646210-X (Version None)
Quarter: 2005Q2

REPORT INFORMATION
  Report Type: 
  Country: None (occurrence: None)
  Receive Date: 20050422
  Receipt Date: 20050422
  Transmission Date: 20051028
  Serious: No
  Sender: FDA-Public Use
  Company Number: None

PATIENT
  Sex: Male
  Weight: 82.2 kg

DRUGS (4)
  1. RITUXAN [Suspect]
     Indication: CENTRAL NERVOUS SYSTEM LYMPHOMA
     Dosage: IV 375 MG/M2 3 DAYS PRIOR TO FIRST CYCLE
     Route: 042
     Dates: start: 20050310
  2. METHOTREXATE [Suspect]
     Dosage: MTX IV 3.5 G/M2
  3. LEUCOVORIN CALCIUM [Suspect]
  4. TEMOZOLOMIDE (TMZ) [Suspect]
     Dosage: P.O. 150 MG/M2 DAILY FOR 5 DAYS ON WEEKS 4 AND 8.

REACTIONS (5)
  - AGITATION [None]
  - CONFUSIONAL STATE [None]
  - METABOLIC ENCEPHALOPATHY [None]
  - NEPHROPATHY TOXIC [None]
  - RENAL FAILURE ACUTE [None]
